FAERS Safety Report 6382174-9 (Version None)
Quarter: 2009Q3

REPORT INFORMATION
  Report Type: 
  Country: None (occurrence: None)
  Receive Date: 20090930
  Receipt Date: 20090917
  Transmission Date: 20100115
  Serious: Yes (Hospitalization, Other)
  Sender: FDA-Public Use
  Company Number: US-PFIZER INC-2009215654

PATIENT
  Sex: Female
  Weight: 72.562 kg

DRUGS (9)
  1. CHANTIX [Suspect]
     Indication: SMOKING CESSATION THERAPY
     Dosage: 1 MG, 2X/DAY
     Route: 048
     Dates: start: 20090504
  2. CHANTIX [Suspect]
     Dosage: 0.5 MG, 1X/DAY
     Route: 048
     Dates: start: 20090401
  3. WELLBUTRIN [Concomitant]
  4. LAMICTAL [Concomitant]
  5. TRAZODONE [Concomitant]
  6. KLONOPIN [Concomitant]
  7. PRILOSEC [Concomitant]
  8. LISINOPRIL [Concomitant]
  9. AMBIEN [Concomitant]

REACTIONS (5)
  - AGITATION [None]
  - CHRONIC OBSTRUCTIVE PULMONARY DISEASE [None]
  - DEPRESSION [None]
  - MOOD SWINGS [None]
  - SELF-INJURIOUS IDEATION [None]
